FAERS Safety Report 12009371 (Version 1)
Quarter: 2016Q1

REPORT INFORMATION
  Report Type: Spontaneous
  Country: US (occurrence: US)
  Receive Date: 20160205
  Receipt Date: 20160205
  Transmission Date: 20160526
  Serious: Yes (Other)
  Sender: FDA-Public Use
  Company Number: US-AMGEN-USASP2016011506

PATIENT
  Age: 75 Year
  Sex: Female

DRUGS (1)
  1. ENBREL [Suspect]
     Active Substance: ETANERCEPT
     Indication: RHEUMATOID ARTHRITIS
     Dosage: 50 MG, Q3WK
     Route: 065
     Dates: start: 2006

REACTIONS (7)
  - Knee arthroplasty [Unknown]
  - Musculoskeletal stiffness [Unknown]
  - Injection site haemorrhage [Unknown]
  - Inappropriate schedule of drug administration [Unknown]
  - Arthralgia [Unknown]
  - Joint stiffness [Unknown]
  - Pain in extremity [Unknown]

NARRATIVE: CASE EVENT DATE: 2006
